FAERS Safety Report 10676133 (Version 2)
Quarter: 2014Q4

REPORT INFORMATION
  Report Type: Spontaneous
  Country: US (occurrence: US)
  Receive Date: 20141226
  Receipt Date: 20141226
  Transmission Date: 20150529
  Serious: Yes (Other)
  Sender: FDA-Public Use
  Company Number: US-AUROBINDO-AUR-APL-2014-12816

PATIENT
  Sex: Female

DRUGS (1)
  1. DULOXETINE 30 MG [Suspect]
     Active Substance: DULOXETINE
     Indication: NEURALGIA
     Dosage: 30 MG, UNK
     Route: 065

REACTIONS (6)
  - Depressed mood [Recovered/Resolved]
  - Panic attack [Recovered/Resolved]
  - Job dissatisfaction [Recovered/Resolved]
  - Product substitution issue [Recovered/Resolved]
  - Crying [Recovered/Resolved]
  - Suicidal ideation [Recovered/Resolved]
